FAERS Safety Report 8920808 (Version 1)
Quarter: 2012Q4

REPORT INFORMATION
  Report Type: 
  Country: FR (occurrence: FR)
  Receive Date: 20121121
  Receipt Date: 20121121
  Transmission Date: 20130627
  Serious: Yes (Hospitalization)
  Sender: FDA-Public Use
  Company Number: FR-ROCHE-105720

PATIENT
  Age: 55 Year
  Sex: Male
  Weight: 76 kg

DRUGS (6)
  1. ROCEPHINE [Suspect]
     Indication: PROSTATITIS
     Route: 042
     Dates: start: 19980601, end: 19980605
  2. VOLTAREN [Suspect]
     Indication: BACK PAIN
     Route: 048
     Dates: start: 19980523, end: 19980529
  3. NOROXINE [Suspect]
     Indication: URINARY TRACT INFECTION
     Route: 048
     Dates: start: 19980527, end: 19980531
  4. ANTALVIC [Suspect]
     Indication: BACK PAIN
     Route: 048
     Dates: start: 19980523, end: 19980529
  5. AMOXICILLIN [Suspect]
     Indication: URINARY TRACT INFECTION
     Route: 048
     Dates: start: 19980605, end: 19980610
  6. MYOLASTAN [Suspect]
     Indication: BACK PAIN
     Route: 048
     Dates: start: 19980523, end: 19980529

REACTIONS (1)
  - Hepatitis [Recovered/Resolved]
